FAERS Safety Report 6349104-7 (Version None)
Quarter: 2009Q3

REPORT INFORMATION
  Report Type: 
  Country: None (occurrence: None)
  Receive Date: 20090911
  Receipt Date: 20090901
  Transmission Date: 20100115
  Serious: Yes (Other)
  Sender: FDA-Public Use
  Company Number: DE-PFIZER INC-2009236166

PATIENT
  Age: 0 Day

DRUGS (2)
  1. CYTOTEC [Suspect]
     Dosage: 100 UG, TWICE IN TOTAL
     Route: 064
     Dates: start: 20051021, end: 20051022
  2. PARTUSISTEN [Concomitant]
     Dosage: 0.025 MG, TWICE
     Route: 064
     Dates: start: 20051023, end: 20051023

REACTIONS (3)
  - BRADYCARDIA FOETAL [None]
  - NEONATAL ASPHYXIA [None]
  - NEONATAL RESPIRATORY ACIDOSIS [None]
